FAERS Safety Report 5027527-6 (Version None)
Quarter: 2006Q2

REPORT INFORMATION
  Report Type: 
  Country: None (occurrence: None)
  Receive Date: 20060616
  Receipt Date: 20060607
  Transmission Date: 20061013
  Serious: Yes (Death, Life-Threatening, Other)
  Sender: FDA-Public Use
  Company Number: GB-JNJFOC-20060305483

PATIENT
  Sex: Male
  Weight: 58 kg

DRUGS (13)
  1. REMICADE [Suspect]
     Indication: RHEUMATOID ARTHRITIS
     Route: 042
  2. METHOTREXATE [Concomitant]
  3. PREDNISOLONE [Concomitant]
  4. AMITRIPTYLINE HCL [Concomitant]
  5. ATENOLOL [Concomitant]
  6. BENDROFLUAZIDE [Concomitant]
  7. CARBAMAZEPINE [Concomitant]
  8. FOLIC ACID [Concomitant]
  9. FOSAMAX [Concomitant]
  10. GABAPENTIN [Concomitant]
  11. PARACETAMOL [Concomitant]
  12. VIOXX [Concomitant]
  13. LANSOPRAZOLE [Concomitant]

REACTIONS (4)
  - BRONCHOPNEUMONIA [None]
  - HAEMOPHILUS INFECTION [None]
  - LOBAR PNEUMONIA [None]
  - RESPIRATORY ARREST [None]
